FAERS Safety Report 17798850 (Version 1)
Quarter: 2020Q2

REPORT INFORMATION
  Report Type: Spontaneous
  Country: DE (occurrence: DE)
  Receive Date: 20200518
  Receipt Date: 20200518
  Transmission Date: 20200714
  Serious: Yes (Hospitalization, Other)
  Sender: FDA-Public Use
  Company Number: DE-TEVA-2020-DE-1235669

PATIENT
  Age: 79 Year
  Sex: Female

DRUGS (13)
  1. DOXORUBICIN [Suspect]
     Active Substance: DOXORUBICIN
     Dosage: SCHEME
  2. ENTRESTO [Concomitant]
     Active Substance: SACUBITRIL\VALSARTAN
     Dosage: 2 DOSAGE FORMS DAILY; 97|103 MG, 1-0-1-0
  3. PANTOPRAZOL [Concomitant]
     Active Substance: PANTOPRAZOLE SODIUM
     Dosage: 20 MILLIGRAM DAILY; 1-0-0-0
  4. DACARBAZIN [Suspect]
     Active Substance: DACARBAZINE
     Dosage: SCHEMA
  5. QUETIAPIN [Concomitant]
     Active Substance: QUETIAPINE
     Dosage: 25 MILLIGRAM DAILY; 0-0-1-0
  6. SPASMEX 15MG [Concomitant]
     Dosage: 15 MILLIGRAM DAILY;  1-0-0-0
  7. BRENTUXIMAB VEDOTIN [Suspect]
     Active Substance: BRENTUXIMAB VEDOTIN
     Dosage: SCHEMA
  8. COTRIM [Suspect]
     Active Substance: SULFAMETHOXAZOLE\TRIMETHOPRIM
     Dosage: 1 DOSAGE FORMS DAILY; 800|160 MG, 1-0-0-0
  9. IVABRADIN [Concomitant]
     Active Substance: IVABRADINE
     Dosage: 10 MILLIGRAM DAILY;  1-0-1-0
  10. VINBLASTIN [Suspect]
     Active Substance: VINBLASTINE
     Dosage: SCHEME
  11. DEKRISTOL 20000I.E. [Concomitant]
     Dosage: 1 DOSAGE FORMS DAILY; 20000 IE, 1-0-0-0
  12. EPLERENON [Concomitant]
     Active Substance: EPLERENONE
     Dosage: 25 MILLIGRAM DAILY;  1-0-0-0
  13. PAROXETIN [Concomitant]
     Active Substance: PAROXETINE HYDROCHLORIDE
     Dosage: 20 MILLIGRAM DAILY; 1-0-0-0

REACTIONS (4)
  - Abnormal faeces [Unknown]
  - General physical health deterioration [Unknown]
  - Bicytopenia [Unknown]
  - Asthenia [Unknown]
